FAERS Safety Report 25819182 (Version 1)
Quarter: 2025Q3

REPORT INFORMATION
  Report Type: Spontaneous
  Country: US (occurrence: US)
  Receive Date: 20250918
  Receipt Date: 20250918
  Transmission Date: 20251021
  Serious: No
  Sender: SANOFI AVENTIS
  Company Number: US-SA-2025SA277152

PATIENT
  Age: 82 Year
  Sex: Male

DRUGS (17)
  1. DUPIXENT [Suspect]
     Active Substance: DUPILUMAB
     Indication: Pemphigoid
     Dosage: 300 MG, QOW
     Route: 058
     Dates: start: 20250826
  2. ATORVASTATIN [Concomitant]
     Active Substance: ATORVASTATIN
  3. CEFPODOXIME PROXETIL [Concomitant]
     Active Substance: CEFPODOXIME PROXETIL
  4. CLOTRIMAZOLE [Concomitant]
     Active Substance: CLOTRIMAZOLE
  5. DOXYCYCLINE [Concomitant]
     Active Substance: DOXYCYCLINE
  6. FISH OIL [Concomitant]
     Active Substance: FISH OIL
  7. METFORMIN [Concomitant]
     Active Substance: METFORMIN HYDROCHLORIDE
  8. VITAMINS NOS [Concomitant]
     Active Substance: VITAMINS
  9. MUPIROCIN [Concomitant]
     Active Substance: MUPIROCIN
  10. OXYBUTYNIN [Concomitant]
     Active Substance: OXYBUTYNIN
  11. PREDNISONE [Concomitant]
     Active Substance: PREDNISONE
  12. SILVER SULFATE [Concomitant]
     Active Substance: SILVER SULFATE
  13. TAMSULOSIN [Concomitant]
     Active Substance: TAMSULOSIN
  14. TRIAMCINOLONE [Concomitant]
     Active Substance: TRIAMCINOLONE
  15. VALACYCLOVIR [Concomitant]
     Active Substance: VALACYCLOVIR HYDROCHLORIDE
  16. XDEMVY [Concomitant]
     Active Substance: LOTILANER
  17. B12 ACTIVE [Concomitant]

REACTIONS (4)
  - Fatigue [Unknown]
  - Vision blurred [Unknown]
  - Dry eye [Unknown]
  - Extra dose administered [Unknown]

NARRATIVE: CASE EVENT DATE: 20250101
